FAERS Safety Report 9258541 (Version 2)
Quarter: 2013Q2

REPORT INFORMATION
  Report Type: Spontaneous
  Country: US (occurrence: US)
  Receive Date: 20130426
  Receipt Date: 20130521
  Transmission Date: 20140414
  Serious: Yes (Death, Hospitalization, Other)
  Sender: FDA-Public Use
  Company Number: US-BAXTER-2013BAX011203

PATIENT
  Age: 63 Year
  Sex: Female

DRUGS (5)
  1. DIANEAL LOW CALCIUM [Suspect]
     Indication: PERITONEAL DIALYSIS
     Route: 033
     Dates: start: 201212, end: 20130403
  2. DIANEAL LOW CALCIUM [Suspect]
     Route: 033
     Dates: start: 201212, end: 20130403
  3. DIANEAL LOW CALCIUM [Suspect]
     Indication: PERITONEAL DIALYSIS
     Route: 033
     Dates: start: 201212, end: 20130403
  4. DIANEAL LOW CALCIUM [Suspect]
     Route: 033
     Dates: start: 201212, end: 20130403
  5. DIANEAL LOW CALCIUM (ULTRABAG) [Suspect]
     Indication: PERITONEAL DIALYSIS
     Route: 033
     Dates: start: 201211, end: 201212

REACTIONS (3)
  - Cardiac arrest [Fatal]
  - Peripheral ischaemia [Unknown]
  - Diabetic vascular disorder [Unknown]
